FAERS Safety Report 6327025-3 (Version None)
Quarter: 2009Q3

REPORT INFORMATION
  Report Type: 
  Country: None (occurrence: None)
  Receive Date: 20090821
  Receipt Date: 20090810
  Transmission Date: 20100115
  Serious: Yes (Hospitalization, Other)
  Sender: FDA-Public Use
  Company Number: ADR12172009

PATIENT
  Age: 80 Year
  Sex: Female

DRUGS (7)
  1. PRAVASTATIN [Suspect]
     Indication: HYPERCHOLESTEROLAEMIA
     Dosage: 20 MG ORAL
     Route: 048
  2. AMITRIPTYLINE [Concomitant]
  3. ACETYLSALCYLIC ACID [Concomitant]
  4. ARTHROTEC [Concomitant]
  5. ATENOLOL [Concomitant]
  6. HYDROCORTISONE [Concomitant]
  7. LEVOTHYROXINE [Concomitant]

REACTIONS (13)
  - ANAEMIA [None]
  - BLOOD PRESSURE DIASTOLIC DECREASED [None]
  - COLITIS [None]
  - DECREASED APPETITE [None]
  - DRUG INTERACTION [None]
  - DRUG LEVEL INCREASED [None]
  - FIBROSIS [None]
  - LARGE INTESTINAL ULCER [None]
  - MUCOSAL INFLAMMATION [None]
  - PULMONARY EMBOLISM [None]
  - SCAR [None]
  - TENDERNESS [None]
  - WEIGHT DECREASED [None]
